FAERS Safety Report 7998604-2 (Version None)
Quarter: 2011Q4

REPORT INFORMATION
  Report Type: 
  Country: None (occurrence: None)
  Receive Date: 20111221
  Receipt Date: 20111206
  Transmission Date: 20120403
  Serious: Yes (Other)
  Sender: FDA-Public Use
  Company Number: US-AMGEN-USACT2011065134

PATIENT
  Age: 19 Year
  Sex: Male

DRUGS (2)
  1. NEULASTA [Suspect]
     Indication: PRODUCT USED FOR UNKNOWN INDICATION
     Dosage: UNK
  2. METHOTREXATE [Concomitant]
     Dosage: UNK

REACTIONS (2)
  - MYELODYSPLASTIC SYNDROME [None]
  - ACUTE MYELOID LEUKAEMIA [None]
